FAERS Safety Report 23193703 (Version 1)
Quarter: 2023Q4

REPORT INFORMATION
  Report Type: Spontaneous
  Country: CA (occurrence: CA)
  Receive Date: 20231116
  Receipt Date: 20231116
  Transmission Date: 20240110
  Serious: Yes (Other)
  Sender: FDA-Public Use
  Company Number: CA-BEIGENE-BGN-2023-013560

PATIENT

DRUGS (10)
  1. BRUKINSA [Suspect]
     Active Substance: ZANUBRUTINIB
     Indication: Waldenstrom^s macroglobulinaemia
     Dosage: 80 MILLIGRAM, BID (2 EVERY 1 DAYS)
     Route: 048
  2. METOPROLOL [Concomitant]
     Active Substance: METOPROLOL
  3. VITAMIN D [Concomitant]
     Active Substance: VITAMIN D NOS
  4. BUPROPION [Concomitant]
     Active Substance: BUPROPION
  5. PREDNISONE [Concomitant]
     Active Substance: PREDNISONE
  6. HYDROCHLOROTHIAZIDE [Concomitant]
     Active Substance: HYDROCHLOROTHIAZIDE
  7. CALCIUM [Concomitant]
     Active Substance: CALCIUM
  8. PANTOPRAZOLE SODIUM [Concomitant]
     Active Substance: PANTOPRAZOLE SODIUM
     Dosage: UNK
  9. SYNTHROID [Concomitant]
     Active Substance: LEVOTHYROXINE SODIUM
  10. DIAZEPAM [Concomitant]
     Active Substance: DIAZEPAM
     Dosage: UNK

REACTIONS (5)
  - Arrhythmia [Unknown]
  - Paraesthesia [Unknown]
  - Depressed mood [Unknown]
  - Pain in extremity [Unknown]
  - Contusion [Unknown]
